FAERS Safety Report 20596952 (Version 1)
Quarter: 2022Q1

REPORT INFORMATION
  Report Type: Spontaneous
  Country: US (occurrence: US)
  Receive Date: 20220315
  Receipt Date: 20220315
  Transmission Date: 20220423
  Serious: No
  Sender: FDA-Public Use
  Company Number: US-PERRIGO-21US031581

PATIENT
  Sex: Male
  Weight: 90.703 kg

DRUGS (5)
  1. NICOTINE POLACRILEX [Suspect]
     Active Substance: NICOTINE
     Indication: Dependence
     Dosage: 1/2 LOZENGE, 10 TO 15 TIMES DAILY
     Route: 002
     Dates: start: 2006
  2. VITAMIN D3 [Concomitant]
     Active Substance: CHOLECALCIFEROL
     Indication: Supplementation therapy
     Dosage: UNK
     Route: 065
     Dates: start: 2020
  3. COENZYME Q10 [Concomitant]
     Active Substance: DIETARY SUPPLEMENT\UBIDECARENONE
     Indication: Heart rate irregular
     Dosage: UNK
     Route: 065
     Dates: start: 2020
  4. MINERALS [Concomitant]
     Active Substance: MINERALS
     Indication: Supplementation therapy
     Dosage: UNK
     Route: 065
  5. MILK THISTLE LIVER TONIC [SILYBUM MARIANUM] [Concomitant]
     Indication: Supplementation therapy
     Dosage: UNK
     Route: 065

REACTIONS (4)
  - Nicotine dependence [Not Recovered/Not Resolved]
  - Dental caries [Not Recovered/Not Resolved]
  - Underdose [Unknown]
  - Wrong technique in product usage process [Unknown]

NARRATIVE: CASE EVENT DATE: 20060101
